FAERS Safety Report 11318665 (Version 4)
Quarter: 2015Q3

REPORT INFORMATION
  Report Type: Report from Study
  Country: US (occurrence: US)
  Receive Date: 20150729
  Receipt Date: 20150930
  Transmission Date: 20151125
  Serious: Yes (Hospitalization, Other)
  Sender: FDA-Public Use
  Company Number: US-ACTELION-A-NJ2015-115177

PATIENT
  Age: 64 Year
  Sex: Female
  Weight: 79.36 kg

DRUGS (9)
  1. VENTAVIS [Suspect]
     Active Substance: ILOPROST
     Dosage: UNK
     Route: 055
     Dates: end: 20150618
  2. ADCIRCA [Concomitant]
     Active Substance: TADALAFIL
  3. RIOCIGUAT [Suspect]
     Active Substance: RIOCIGUAT
     Indication: PULMONARY HYPERTENSION
     Dosage: 2.5 MG, TID
     Route: 048
     Dates: start: 20140121
  4. COUMADIN [Concomitant]
     Active Substance: WARFARIN SODIUM
  5. TREPROSTINIL [Concomitant]
     Active Substance: TREPROSTINIL
  6. TRACLEER [Suspect]
     Active Substance: BOSENTAN
     Indication: PULMONARY ARTERIAL HYPERTENSION
     Dosage: UNK
     Route: 048
  7. ESBRIET [Concomitant]
     Active Substance: PIRFENIDONE
  8. VENTAVIS [Suspect]
     Active Substance: ILOPROST
     Indication: PULMONARY ARTERIAL HYPERTENSION
     Dosage: UNK
     Route: 055
     Dates: end: 20150618
  9. PIRFENIDONE [Concomitant]
     Active Substance: PIRFENIDONE

REACTIONS (14)
  - Pulmonary hypertension [Recovered/Resolved]
  - Drug dose omission [Unknown]
  - Heart rate increased [Unknown]
  - Haematochezia [Unknown]
  - Muscle tightness [Recovered/Resolved]
  - Weight decreased [Unknown]
  - Dyspnoea [Unknown]
  - Herpes zoster [Unknown]
  - Labelled drug-drug interaction medication error [Unknown]
  - General physical health deterioration [Unknown]
  - Fluid retention [Unknown]
  - Central venous pressure increased [Recovered/Resolved]
  - Dyspnoea [Unknown]
  - Therapy change [Unknown]

NARRATIVE: CASE EVENT DATE: 20150310
